FAERS Safety Report 5221557-7 (Version None)
Quarter: 2007Q1

REPORT INFORMATION
  Report Type: 
  Country: None (occurrence: None)
  Receive Date: 20070127
  Receipt Date: 20070126
  Transmission Date: 20070707
  Serious: Yes (Other)
  Sender: FDA-Public Use
  Company Number: SE-ABBOTT-06P-150-0353083-00

PATIENT
  Sex: Female

DRUGS (3)
  1. REDUCTIL [Suspect]
     Indication: OBESITY
     Route: 048
     Dates: end: 20060701
  2. NAPROXEN [Concomitant]
     Indication: DRUG USE FOR UNKNOWN INDICATION
     Route: 048
  3. CETIRIZINE HCL [Concomitant]
     Indication: DRUG USE FOR UNKNOWN INDICATION
     Route: 048

REACTIONS (4)
  - ARTERIAL DISORDER [None]
  - GLOMERULOSCLEROSIS [None]
  - OEDEMA PERIPHERAL [None]
  - RENAL FAILURE [None]
